FAERS Safety Report 15940624 (Version 5)
Quarter: 2020Q3

REPORT INFORMATION
  Report Type: Report from Study
  Country: JP (occurrence: JP)
  Receive Date: 20190208
  Receipt Date: 20200721
  Transmission Date: 20201102
  Serious: Yes (Other)
  Sender: FDA-Public Use
  Company Number: JP-009507513-1902JPN000612J

PATIENT
  Age: 57 Year
  Sex: Female
  Weight: 48 kg

DRUGS (27)
  1. PROGRAF [Suspect]
     Active Substance: TACROLIMUS
     Indication: PROPHYLAXIS
     Dosage: 0.2 MILLIGRAM, QD,EVERY 24 HOURS
     Route: 048
     Dates: start: 20181228
  2. PROGRAF [Concomitant]
     Active Substance: TACROLIMUS
     Dosage: 0.48 MILLIGRAM/KILOGRAM
     Route: 041
     Dates: start: 20181204, end: 20181210
  3. PROGRAF [Concomitant]
     Active Substance: TACROLIMUS
     Dosage: 0.65 MILLIGRAM/KILOGRAM
     Route: 041
     Dates: start: 20181214
  4. ACICLOVIR [Concomitant]
     Active Substance: ACYCLOVIR
     Indication: PROPHYLAXIS
     Dosage: 200 MILLIGRAM, 5 TIMES PER DAY
     Route: 048
     Dates: start: 20181128
  5. SOLU?MEDROL [Concomitant]
     Active Substance: METHYLPREDNISOLONE SODIUM SUCCINATE
     Dosage: 1.5 VIAL
     Route: 042
     Dates: start: 20181128, end: 20181128
  6. PROGRAF [Suspect]
     Active Substance: TACROLIMUS
     Dosage: 0.5 MILLIGRAM, QD,EVERY24HOURS
     Route: 048
     Dates: start: 20181228
  7. PROGRAF [Suspect]
     Active Substance: TACROLIMUS
     Dosage: 1 MILLIGRAM, BID,EVERY 12 HOURS
     Route: 048
     Dates: start: 20190108
  8. PROGRAF [Suspect]
     Active Substance: TACROLIMUS
     Dosage: 0.2 MILLIGRAM, BID,EVERY 12 HOURS
     Route: 048
     Dates: start: 20181228
  9. PROGRAF [Concomitant]
     Active Substance: TACROLIMUS
     Dosage: 0.4 MILLIGRAM/KILOGRAM
     Route: 041
     Dates: start: 20181201, end: 20181202
  10. PROGRAF [Concomitant]
     Active Substance: TACROLIMUS
     Dosage: 0.75 MILLIGRAM/KILOGRAM
     Route: 041
     Dates: start: 20181213, end: 20181213
  11. METHOTREXATE. [Concomitant]
     Active Substance: METHOTREXATE
     Indication: PROPHYLAXIS
     Dosage: 50 MILLIGRAM
     Route: 051
     Dates: start: 20181128
  12. MOSAPRIDE CITRATE HYDRATE [Concomitant]
     Active Substance: MOSAPRIDE CITRATE DIHYDRATE
     Indication: ABDOMINAL DISCOMFORT
     Dosage: 1 DOSAGE FORM, TID
     Route: 048
  13. FLUCONAZOLE. [Concomitant]
     Active Substance: FLUCONAZOLE
     Indication: PROPHYLAXIS
     Dosage: 1 DOSAGE FORM, QD
     Route: 048
  14. PROGRAF [Concomitant]
     Active Substance: TACROLIMUS
     Dosage: 0.43 MILLIGRAM/KILOGRAM
     Route: 041
     Dates: start: 20181203, end: 20181203
  15. MIYA?BM [Concomitant]
     Active Substance: CLOSTRIDIUM BUTYRICUM SPORES STRAIN M-55
     Indication: PROPHYLAXIS AGAINST DIARRHOEA
     Dosage: 1 DOSAGE FORM, TID
     Route: 048
  16. SOLU?MEDROL [Concomitant]
     Active Substance: METHYLPREDNISOLONE SODIUM SUCCINATE
     Dosage: 1VIAL
     Route: 042
     Dates: start: 20181129, end: 20181201
  17. PROGRAF [Concomitant]
     Active Substance: TACROLIMUS
     Indication: PROPHYLAXIS
     Dosage: 0.55 MILLIGRAM/KILOGRAM
     Route: 041
     Dates: start: 20181128
  18. PROGRAF [Concomitant]
     Active Substance: TACROLIMUS
     Dosage: 0.5 MILLIGRAM/KILOGRAM
     Route: 041
     Dates: start: 20181129, end: 20181130
  19. URSO [Concomitant]
     Active Substance: URSODIOL
     Indication: PROPHYLAXIS
     Dosage: 2 DOSAGE FORM, TID
     Route: 048
  20. HEMOCURON [Concomitant]
     Active Substance: TRIBENOSIDE
     Indication: HAEMORRHOIDS
     Dosage: 2 DOSAGE FORM, TID
     Route: 048
  21. SOLU?MEDROL [Concomitant]
     Active Substance: METHYLPREDNISOLONE SODIUM SUCCINATE
     Dosage: 0.5VIAL
     Route: 042
     Dates: start: 20181202
  22. LETERMOVIR [Suspect]
     Active Substance: LETERMOVIR
     Indication: ANTIVIRAL PROPHYLAXIS
     Dosage: 480 MILLIGRAM, QD
     Route: 048
     Dates: start: 20181128, end: 20190205
  23. PROGRAF [Suspect]
     Active Substance: TACROLIMUS
     Indication: PROPHYLAXIS
     Dosage: 0.5 MILLIGRAM, BID,EVERY 12 HOURS
     Route: 048
     Dates: start: 20181228
  24. PROGRAF [Concomitant]
     Active Substance: TACROLIMUS
     Dosage: 0.55 MILLIGRAM/KILOGRAM
     Route: 041
     Dates: start: 20181211, end: 20181211
  25. POLAPREZINC OD [Concomitant]
     Indication: TASTE DISORDER
     Dosage: 1 DOSAGE FORM, BID
     Route: 048
  26. PROGRAF [Concomitant]
     Active Substance: TACROLIMUS
     Dosage: 0.73 MILLIGRAM/KILOGRAM
     Route: 041
     Dates: start: 20181212, end: 20181212
  27. LEVOFLOXACIN HEMIHYDRATE [Concomitant]
     Active Substance: LEVOFLOXACIN
     Indication: PROPHYLAXIS
     Dosage: 1 DOSAGE FORM, QD
     Route: 048

REACTIONS (4)
  - Cytomegalovirus enterocolitis [Recovering/Resolving]
  - Acute graft versus host disease in skin [Recovering/Resolving]
  - Adverse event [Unknown]
  - Cytomegalovirus hepatitis [Recovered/Resolved]

NARRATIVE: CASE EVENT DATE: 2018
